FAERS Safety Report 8974712 (Version 2)
Quarter: 2012Q4

REPORT INFORMATION
  Report Type: 
  Country: JP (occurrence: JP)
  Receive Date: 20121220
  Receipt Date: 20121229
  Transmission Date: 20130627
  Serious: Yes (Other)
  Sender: FDA-Public Use
  Company Number: JP-009507513-1212JPN004495

PATIENT
  Age: 62 Year
  Sex: Female

DRUGS (6)
  1. FOSAPREPITANT DIMEGLUMINE [Suspect]
     Indication: PROPHYLAXIS OF NAUSEA AND VOMITING
     Dosage: 150 mg, Once
     Route: 041
     Dates: start: 20121016, end: 20121016
  2. EPIRUBICIN HYDROCHLORIDE [Suspect]
     Indication: BREAST CANCER
     Dosage: 150mg per day
     Route: 041
     Dates: start: 20121016, end: 20121016
  3. CYCLOPHOSPHAMIDE [Concomitant]
     Dosage: 250mg per day
     Dates: start: 20121016, end: 20121016
  4. FLUOROURACIL [Concomitant]
     Dosage: 750mg per day
     Dates: start: 20121016, end: 20121016
  5. ALOXI [Concomitant]
     Dosage: 0.75 mg, UNK
     Dates: start: 20121016, end: 20121016
  6. DEXART [Concomitant]
     Dosage: 3.3 mg, UNK
     Dates: start: 20121016, end: 20121016

REACTIONS (2)
  - Injection site erythema [Not Recovered/Not Resolved]
  - Injection site pain [Not Recovered/Not Resolved]
